FAERS Safety Report 9755755 (Version 1)
Quarter: 2013Q4

REPORT INFORMATION
  Report Type: Spontaneous
  Country: US (occurrence: US)
  Receive Date: 20131213
  Receipt Date: 20131213
  Transmission Date: 20140711
  Serious: No
  Sender: FDA-Public Use
  Company Number: US-GLAXOSMITHKLINE-A1023518A

PATIENT
  Age: 53 Year
  Sex: Female

DRUGS (3)
  1. NICODERM CQ CLEAR 14MG [Suspect]
     Indication: EX-TOBACCO USER
     Dates: start: 20130313
  2. NICODERM CQ CLEAR 7MG [Suspect]
     Indication: EX-TOBACCO USER
     Dates: start: 20130313
  3. LEVAQUIN [Suspect]
     Indication: SINUSITIS

REACTIONS (3)
  - Drug ineffective [Unknown]
  - Dizziness [Unknown]
  - Drug interaction [Unknown]
